FAERS Safety Report 4288825-7 (Version None)
Quarter: 2004Q1

REPORT INFORMATION
  Report Type: 
  Country: None (occurrence: None)
  Receive Date: 20040209
  Receipt Date: 20040127
  Transmission Date: 20041129
  Serious: Yes (Hospitalization)
  Sender: FDA-Public Use
  Company Number: PHBS2004TR01708

PATIENT
  Age: 6 Year
  Sex: Female
  Weight: 26 kg

DRUGS (2)
  1. CARBAMAZEPINE [Suspect]
     Indication: EPILEPSY
     Route: 065
  2. VALPROATE SODIUM [Concomitant]
     Indication: EPILEPSY
     Route: 065

REACTIONS (7)
  - BONE DISORDER [None]
  - CALCINOSIS [None]
  - FACIAL HEMIATROPHY [None]
  - MORPHOEA [None]
  - SCLERODERMA [None]
  - SKIN ATROPHY [None]
  - SKIN DISCOLOURATION [None]
